FAERS Safety Report 10170980 (Version 1)
Quarter: 2014Q2

REPORT INFORMATION
  Report Type: Spontaneous
  Country: US (occurrence: None)
  Receive Date: 20140513
  Receipt Date: 20140513
  Transmission Date: 20141212
  Serious: Yes (Hospitalization)
  Sender: FDA-Public Use
  Company Number: None

PATIENT
  Age: 58 Year
  Sex: Female

DRUGS (2)
  1. TAFINLAR [Suspect]
     Indication: MALIGNANT MELANOMA
     Route: 048
     Dates: start: 20140222
  2. MEKINIST [Suspect]
     Indication: MALIGNANT MELANOMA
     Route: 048
     Dates: start: 20140222

REACTIONS (8)
  - Pyrexia [None]
  - Diarrhoea [None]
  - Myalgia [None]
  - Dehydration [None]
  - Eye swelling [None]
  - Hepatic failure [None]
  - Renal failure [None]
  - Vomiting [None]
